FAERS Safety Report 7315206-1 (Version None)
Quarter: 2011Q1

REPORT INFORMATION
  Report Type: 
  Country: None (occurrence: None)
  Receive Date: 20110217
  Receipt Date: 20110217
  Transmission Date: 20110831
  Serious: Yes (Hospitalization)
  Sender: FDA-Public Use
  Company Number: None

PATIENT
  Sex: Female
  Weight: 61.1449 kg

DRUGS (1)
  1. WELLBUTRIN [Suspect]
     Indication: DEPRESSION

REACTIONS (1)
  - CONVULSION [None]
